FAERS Safety Report 14170424 (Version 6)
Quarter: 2018Q1

REPORT INFORMATION
  Report Type: Spontaneous
  Country: GB (occurrence: GB)
  Receive Date: 20171108
  Receipt Date: 20180309
  Transmission Date: 20180508
  Serious: Yes (Death)
  Sender: FDA-Public Use
  Company Number: GB-CELGENEUS-GBR-20171101442

PATIENT
  Age: 56 Year
  Sex: Male

DRUGS (6)
  1. REVLIMID [Suspect]
     Active Substance: LENALIDOMIDE
     Indication: B-CELL LYMPHOMA
     Dosage: 10 MILLIGRAM
     Route: 048
     Dates: start: 201607, end: 20161114
  2. REVLIMID [Suspect]
     Active Substance: LENALIDOMIDE
     Dosage: 5 MILLIGRAM
     Route: 048
     Dates: start: 20160913, end: 20160913
  3. PREDNISOLONE. [Concomitant]
     Active Substance: PREDNISOLONE
     Indication: B-CELL LYMPHOMA
     Route: 065
     Dates: end: 201307
  4. VINCRISTINE [Concomitant]
     Active Substance: VINCRISTINE
     Indication: B-CELL LYMPHOMA
     Route: 065
  5. REVLIMID [Suspect]
     Active Substance: LENALIDOMIDE
     Dosage: 10 MILLIGRAM
     Route: 048
     Dates: start: 20160916
  6. DEXAMETHASONE. [Suspect]
     Active Substance: DEXAMETHASONE
     Indication: B-CELL LYMPHOMA
     Route: 065

REACTIONS (1)
  - B-cell lymphoma [Fatal]

NARRATIVE: CASE EVENT DATE: 20161108
